FAERS Safety Report 8341632-8 (Version None)
Quarter: 2012Q2

REPORT INFORMATION
  Report Type: 
  Country: None (occurrence: None)
  Receive Date: 20120507
  Receipt Date: 20120501
  Transmission Date: 20120825
  Serious: No
  Sender: FDA-Public Use
  Company Number: US-BAYER-2012-043485

PATIENT

DRUGS (3)
  1. NAPROXEN SODIUM [Suspect]
     Route: 048
  2. TYLENOL (CAPLET) [Concomitant]
  3. SUDAFED 12 HOUR [Concomitant]

REACTIONS (5)
  - BONE PAIN [None]
  - HYPERSENSITIVITY [None]
  - ARTHRALGIA [None]
  - PAIN [None]
  - MYALGIA [None]
